FAERS Safety Report 6034522-7 (Version None)
Quarter: 2009Q1

REPORT INFORMATION
  Report Type: 
  Country: None (occurrence: None)
  Receive Date: 20090112
  Receipt Date: 20090106
  Transmission Date: 20090719
  Serious: Yes (Hospitalization, Disabling)
  Sender: FDA-Public Use
  Company Number: JP-ABBOTT-08P-087-0495243-00

PATIENT
  Age: 84 Year
  Sex: Male
  Weight: 65 kg

DRUGS (4)
  1. LEUPROLIDE ACETATE [Suspect]
     Indication: PROSTATE CANCER STAGE II
     Route: 058
     Dates: start: 20070112, end: 20080528
  2. LEUPROLIDE ACETATE [Suspect]
     Dates: start: 20061117, end: 20070112
  3. CASODEX [Concomitant]
     Indication: PROSTATE CANCER STAGE II
     Route: 048
     Dates: end: 20080401
  4. NORVASC [Concomitant]
     Indication: AORTIC ANEURYSM
     Route: 048

REACTIONS (2)
  - GENERAL PHYSICAL HEALTH DETERIORATION [None]
  - INTESTINAL OBSTRUCTION [None]
